FAERS Safety Report 4519369-2 (Version None)
Quarter: 2004Q4

REPORT INFORMATION
  Report Type: 
  Country: None (occurrence: None)
  Receive Date: 20041202
  Receipt Date: 20041123
  Transmission Date: 20050328
  Serious: Yes (Hospitalization)
  Sender: FDA-Public Use
  Company Number: 2004-04807

PATIENT
  Age: 80 Year
  Sex: Male
  Weight: 63.5 kg

DRUGS (7)
  1. OXYTROL [Suspect]
     Indication: INCONTINENCE
     Dosage: 1 PATCH, 2/WEEK, TRANSDERMAL
     Route: 062
     Dates: start: 20040401
  2. ARICEPT [Concomitant]
  3. LIPITOR [Concomitant]
  4. ASPIRIN [Concomitant]
  5. VITAMIN E [Concomitant]
  6. VITAMIN C [Concomitant]
  7. CALCIUM [Concomitant]

REACTIONS (9)
  - ANORECTAL DISORDER [None]
  - COLON CANCER [None]
  - CONSTIPATION [None]
  - FAECALOMA [None]
  - GASTROINTESTINAL DISORDER [None]
  - GROIN PAIN [None]
  - LOOSE STOOLS [None]
  - OBSTRUCTION [None]
  - PHARMACEUTICAL PRODUCT COMPLAINT [None]
